FAERS Safety Report 20791860 (Version 1)
Quarter: 2022Q2

REPORT INFORMATION
  Report Type: Spontaneous
  Country: DE (occurrence: DE)
  Receive Date: 20220505
  Receipt Date: 20220505
  Transmission Date: 20220720
  Serious: Yes (Hospitalization, Other)
  Sender: FDA-Public Use
  Company Number: None

PATIENT
  Age: 39 Year
  Sex: Female

DRUGS (3)
  1. CHORIOGONADOTROPIN ALFA [Suspect]
     Active Substance: CHORIOGONADOTROPIN ALFA
     Indication: Assisted reproductive technology
     Dosage: TRIGGER: 06 APR 2022 REC (RECOMBINANT) HCG (HUMAN CHORIONIC GONADOTROPIN) (OVITRELLE)
     Dates: start: 20220406
  2. GONAL-F [Suspect]
     Active Substance: FOLLITROPIN
     Indication: Assisted reproductive technology
     Dosage: REC (RECOMBINANT) FSH (FOLLICLE STIMULATING HORMONE) FOR 9 DAYS
     Dates: start: 20220328, end: 20220405
  3. ORGALUTRAN [Suspect]
     Active Substance: GANIRELIX ACETATE
     Indication: Assisted reproductive technology
     Dosage: DOWNREGULATION: GNRH (GONADOTROPIN RELEASING HORMONE) ANTAGONIST (MULTIPLE) ORGALUTRAN

REACTIONS (3)
  - Local reaction [Recovered/Resolved]
  - Ovarian haemorrhage [Recovered/Resolved]
  - Post procedural haemorrhage [Recovered/Resolved]

NARRATIVE: CASE EVENT DATE: 20220401
